FAERS Safety Report 5287823-4 (Version None)
Quarter: 2007Q2

REPORT INFORMATION
  Report Type: 
  Country: None (occurrence: None)
  Receive Date: 20070403
  Receipt Date: 20070403
  Transmission Date: 20071010
  Serious: Yes (Death)
  Sender: FDA-Public Use
  Company Number: None

PATIENT
  Sex: Female
  Weight: 98.8842 kg

DRUGS (2)
  1. CETUXIMAB [Suspect]
     Indication: BREAST CANCER METASTATIC
     Dosage: 250 MG/M2 IV BOLUS WEEKLY IV 040
     Route: 042
     Dates: start: 20060920, end: 20061011
  2. CARBOPLATIN [Suspect]
     Indication: BREAST CANCER METASTATIC
     Dosage: AUC=2 IV BOLUS 3 OUT OF 4 WEEKS IV 040
     Route: 042
     Dates: start: 20060920, end: 20061004

REACTIONS (1)
  - MALIGNANT NEOPLASM PROGRESSION [None]
